FAERS Safety Report 18097866 (Version 8)
Quarter: 2021Q4

REPORT INFORMATION
  Report Type: Spontaneous
  Country: US (occurrence: US)
  Receive Date: 20200731
  Receipt Date: 20211227
  Transmission Date: 20220303
  Serious: Yes (Other)
  Sender: FDA-Public Use
  Company Number: US-PFIZER INC-2020282809

PATIENT
  Age: 67 Year
  Sex: Female

DRUGS (1)
  1. PREMARIN [Suspect]
     Active Substance: ESTROGENS, CONJUGATED
     Dosage: 0.5 G, 2X/WEEK (APPLY 0.5 GRAM PER VAGINA TWICE WEEKLY)
     Route: 067

REACTIONS (7)
  - Immunodeficiency [Unknown]
  - Autoimmune disorder [Unknown]
  - Migraine [Unknown]
  - COVID-19 [Unknown]
  - Feeling abnormal [Unknown]
  - Illness [Unknown]
  - Product prescribing error [Unknown]

NARRATIVE: CASE EVENT DATE: 20201201
